FAERS Safety Report 21211993 (Version 3)
Quarter: 2023Q1

REPORT INFORMATION
  Report Type: Spontaneous
  Country: US (occurrence: US)
  Receive Date: 20220815
  Receipt Date: 20230301
  Transmission Date: 20230417
  Serious: Yes (Other)
  Sender: FDA-Public Use
  Company Number: US-PFIZER INC-PV202200042081

PATIENT
  Age: 93 Year
  Sex: Female
  Weight: 49.9 kg

DRUGS (4)
  1. BRAFTOVI [Suspect]
     Active Substance: ENCORAFENIB
     Dosage: 75 MG
  2. MEKTOVI [Suspect]
     Active Substance: BINIMETINIB
     Indication: Lung neoplasm malignant
     Dosage: 45 MG, DAILY
  3. MEKTOVI [Suspect]
     Active Substance: BINIMETINIB
     Indication: Hepatic cancer
     Dosage: 6 DF, 1X/DAY (180MG OF MEKTOVI AND TAKE 6 PILLS A DAY)
  4. MEKTOVI [Suspect]
     Active Substance: BINIMETINIB
     Indication: Colon cancer

REACTIONS (3)
  - Second primary malignancy [Unknown]
  - Lung neoplasm malignant [Unknown]
  - Neoplasm progression [Unknown]
